FAERS Safety Report 25719083 (Version 1)
Quarter: 2025Q3

REPORT INFORMATION
  Report Type: Report from Study
  Country: TW (occurrence: TW)
  Receive Date: 20250823
  Receipt Date: 20250823
  Transmission Date: 20251021
  Serious: Yes (Hospitalization)
  Sender: ABBVIE
  Company Number: TW-ABBVIE-6424308

PATIENT
  Age: 78 Year
  Sex: Female
  Weight: 71 kg

DRUGS (1)
  1. HUMIRA [Suspect]
     Active Substance: ADALIMUMAB
     Indication: Rheumatoid arthritis
     Route: 058
     Dates: start: 20231002, end: 20250804

REACTIONS (6)
  - Bone loss [Unknown]
  - Fall [Recovering/Resolving]
  - Compression fracture [Unknown]
  - Compression fracture [Unknown]
  - Back pain [Unknown]
  - Wound [Unknown]

NARRATIVE: CASE EVENT DATE: 20250801
